FAERS Safety Report 8075655-3 (Version None)
Quarter: 2012Q1

REPORT INFORMATION
  Report Type: 
  Country: None (occurrence: None)
  Receive Date: 20120127
  Receipt Date: 20120120
  Transmission Date: 20120608
  Serious: Yes (Hospitalization, Other)
  Sender: FDA-Public Use
  Company Number: US-ROXANE LABORATORIES, INC.-2012-RO-00513RO

PATIENT
  Age: 55 Year
  Sex: Male

DRUGS (7)
  1. MYCOPHENOLATE MOFETIL [Suspect]
     Indication: IMMUNOSUPPRESSION
  2. IMATINIB MESYLATE [Suspect]
     Dosage: 300 MG
     Dates: start: 20091001
  3. IMATINIB MESYLATE [Suspect]
  4. TACROLIMUS [Suspect]
     Indication: IMMUNOSUPPRESSION
  5. IMATINIB MESYLATE [Suspect]
     Dosage: 300 MG
     Dates: start: 20090801
  6. IMATINIB MESYLATE [Suspect]
     Dosage: 400 MG
     Dates: end: 20090901
  7. IMATINIB MESYLATE [Suspect]

REACTIONS (2)
  - CHRONIC MYELOID LEUKAEMIA [None]
  - BLOOD ALKALINE PHOSPHATASE INCREASED [None]
